FAERS Safety Report 14658769 (Version 2)
Quarter: 2018Q2

REPORT INFORMATION
  Report Type: Report from Study
  Country: RU (occurrence: RU)
  Receive Date: 20180320
  Receipt Date: 20180430
  Transmission Date: 20180711
  Serious: Yes (Other)
  Sender: FDA-Public Use
  Company Number: RU-ROCHE-2086699

PATIENT
  Sex: Female

DRUGS (1)
  1. KADCYLA [Suspect]
     Active Substance: ADO-TRASTUZUMAB EMTANSINE
     Indication: BREAST CANCER
     Dosage: MOST RECENT DOSE WAS ON 19/JAN/2018
     Route: 065
     Dates: start: 20171226

REACTIONS (1)
  - Metastases to lung [Unknown]

NARRATIVE: CASE EVENT DATE: 20180208
